FAERS Safety Report 16123029 (Version 1)
Quarter: 2019Q1

REPORT INFORMATION
  Report Type: Spontaneous
  Country: CA (occurrence: CA)
  Receive Date: 20190327
  Receipt Date: 20190327
  Transmission Date: 20190418
  Serious: Yes (Life-Threatening, Other)
  Sender: FDA-Public Use
  Company Number: CA-JNJFOC-20190327033

PATIENT
  Age: 60 Year
  Sex: Female
  Weight: 74.84 kg

DRUGS (7)
  1. LIPITOR [Concomitant]
     Active Substance: ATORVASTATIN CALCIUM
     Route: 065
  2. ASPIRIN. [Concomitant]
     Active Substance: ASPIRIN
     Route: 048
  3. INVEGA SUSTENNA [Suspect]
     Active Substance: PALIPERIDONE PALMITATE
     Indication: SCHIZOAFFECTIVE DISORDER
     Route: 030
  4. INVEGA SUSTENNA [Suspect]
     Active Substance: PALIPERIDONE PALMITATE
     Indication: BIPOLAR DISORDER
     Route: 030
  5. ABILIFY MAINTENA [Suspect]
     Active Substance: ARIPIPRAZOLE
     Indication: SCHIZOAFFECTIVE DISORDER
     Dosage: 400
     Route: 030
  6. ABILIFY MAINTENA [Suspect]
     Active Substance: ARIPIPRAZOLE
     Indication: BIPOLAR DISORDER
     Dosage: 400
     Route: 030
  7. DETROL [Concomitant]
     Active Substance: TOLTERODINE TARTRATE
     Route: 048

REACTIONS (11)
  - Weight increased [Unknown]
  - Musculoskeletal stiffness [Unknown]
  - Extrapyramidal disorder [Unknown]
  - Somnolence [Unknown]
  - Fatigue [Unknown]
  - Pollakiuria [Unknown]
  - Cerebral lobotomy [Unknown]
  - Bladder disorder [Unknown]
  - Drooling [Unknown]
  - Overdose [Unknown]
  - Asthenia [Unknown]
